FAERS Safety Report 5564646-X (Version None)
Quarter: 2007Q4

REPORT INFORMATION
  Report Type: 
  Country: None (occurrence: None)
  Receive Date: 20071218
  Receipt Date: 20071212
  Transmission Date: 20080405
  Serious: Yes (Hospitalization)
  Sender: FDA-Public Use
  Company Number: US-GENENTECH-252557

PATIENT
  Sex: Male
  Weight: 64.6 kg

DRUGS (9)
  1. AVASTIN [Suspect]
     Indication: BLADDER CANCER
     Dosage: 970 MG, Q3W
     Route: 042
     Dates: start: 20070712
  2. CISPLATIN [Suspect]
     Indication: TRANSITIONAL CELL CARCINOMA
     Dosage: 110 MG, Q3W
     Route: 042
     Dates: start: 20070712, end: 20071115
  3. GEMCITABINE [Suspect]
     Indication: TRANSITIONAL CELL CARCINOMA
     Dosage: 750 MG, UNK
     Route: 042
     Dates: start: 20070712, end: 20071115
  4. ATENOLOL [Concomitant]
     Indication: DRUG USE FOR UNKNOWN INDICATION
  5. ECOTRIN [Concomitant]
     Indication: DRUG USE FOR UNKNOWN INDICATION
  6. GLIPIZIDE [Concomitant]
     Indication: DRUG USE FOR UNKNOWN INDICATION
  7. LIPITOR [Concomitant]
     Indication: DRUG USE FOR UNKNOWN INDICATION
  8. NIASPAN [Concomitant]
     Indication: DRUG USE FOR UNKNOWN INDICATION
  9. ZETIA [Concomitant]
     Indication: DRUG USE FOR UNKNOWN INDICATION

REACTIONS (1)
  - HAEMOGLOBINAEMIA [None]
